FAERS Safety Report 7936963-7 (Version None)
Quarter: 2011Q4

REPORT INFORMATION
  Report Type: 
  Country: None (occurrence: None)
  Receive Date: 20111123
  Receipt Date: 20111118
  Transmission Date: 20120403
  Serious: No
  Sender: FDA-Public Use
  Company Number: US-ROCHE-722152

PATIENT
  Sex: Female
  Weight: 66.3 kg

DRUGS (10)
  1. AVASTIN [Suspect]
     Indication: BREAST CANCER
     Dosage: DOSE LEVEL: 15 MG/KG, FORM: VIALS
     Route: 042
  2. AVASTIN [Suspect]
     Dosage: DOSE LEVEL: 15 MG/KG, FORM: VIALS, THIRD CYCLE
     Route: 042
  3. HERCEPTIN [Suspect]
     Route: 042
  4. HERCEPTIN [Suspect]
     Indication: BREAST CANCER
     Dosage: LOADING DOSE, FORM: VIAL
     Route: 042
  5. PEGFILGRASTIM [Concomitant]
  6. CARBOPLATIN [Suspect]
     Indication: BREAST CANCER
     Dosage: DOSE LEVEL: 6 AUC, FORM: VIALS
     Route: 042
  7. HERCEPTIN [Suspect]
     Dosage: DOSE LEVEL: 6 MG/KG, FORM: VIALS, THIRD CYCLE
     Route: 042
  8. CARBOPLATIN [Suspect]
     Dosage: DOSE LEVEL: 6 AUC, FORM: VIALS,  THIRD CYCLE
     Route: 042
  9. DOCETAXEL [Suspect]
     Indication: BREAST CANCER
     Dosage: DOSE LEVEL: 75 MG/M2, FORM: VIAL
     Route: 042
  10. DOCETAXEL [Suspect]
     Dosage: DOSE LEVEL: 75 MG/M2, FORM: VIALS, THIRD CYCLE
     Route: 042

REACTIONS (1)
  - DEHYDRATION [None]
